FAERS Safety Report 7077933-3 (Version None)
Quarter: 2010Q4

REPORT INFORMATION
  Report Type: 
  Country: None (occurrence: None)
  Receive Date: 20101101
  Receipt Date: 20101025
  Transmission Date: 20110411
  Serious: Yes (Death, Hospitalization, Other)
  Sender: FDA-Public Use
  Company Number: UG-ABBOTT-10P-165-0677994-00

PATIENT
  Sex: Male

DRUGS (4)
  1. ALUVIA TABLETS [Suspect]
     Indication: HIV INFECTION
     Route: 048
     Dates: start: 20100727, end: 20101008
  2. RALTEGRAVIR [Concomitant]
     Indication: HIV INFECTION
     Dates: start: 20100727, end: 20101008
  3. SEPTRIN [Concomitant]
     Indication: PRODUCT USED FOR UNKNOWN INDICATION
     Dates: start: 20100602
  4. DICLOFENAC SODIUM [Concomitant]
     Indication: PRODUCT USED FOR UNKNOWN INDICATION
     Dates: start: 20100921

REACTIONS (11)
  - BACTERIAL INFECTION [None]
  - BLOOD PRESSURE IMMEASURABLE [None]
  - CACHEXIA [None]
  - DEHYDRATION [None]
  - HEPATITIS [None]
  - KLEBSIELLA SEPSIS [None]
  - MYALGIA [None]
  - OROPHARYNGEAL CANDIDIASIS [None]
  - PNEUMONIA KLEBSIELLA [None]
  - POLLAKIURIA [None]
  - TACHYCARDIA [None]
